FAERS Safety Report 13770748 (Version 1)
Quarter: 2017Q3

REPORT INFORMATION
  Report Type: Spontaneous
  Country: FR (occurrence: FR)
  Receive Date: 20170720
  Receipt Date: 20170720
  Transmission Date: 20171127
  Serious: Yes (Hospitalization, Other)
  Sender: FDA-Public Use
  Company Number: FR-BRISTOL-MYERS SQUIBB COMPANY-BMS-2017-062721

PATIENT
  Age: 96 Year
  Sex: Female

DRUGS (3)
  1. ELIQUIS [Suspect]
     Active Substance: APIXABAN
     Indication: CEREBROVASCULAR ACCIDENT PROPHYLAXIS
     Dosage: 2.5 MG, BID
     Route: 065
     Dates: start: 20170531
  2. OFLOXACIN. [Concomitant]
     Active Substance: OFLOXACIN
     Indication: UROSEPSIS
     Dosage: UNK
     Route: 042
  3. CEFTRIAXONE. [Concomitant]
     Active Substance: CEFTRIAXONE
     Indication: UROSEPSIS
     Dosage: UNK
     Route: 058

REACTIONS (5)
  - Anaemia [Unknown]
  - Ecchymosis [Unknown]
  - Packed red blood cell transfusion [Unknown]
  - Haematoma [Recovering/Resolving]
  - Hyperkalaemia [Unknown]

NARRATIVE: CASE EVENT DATE: 20170606
